FAERS Safety Report 4440358-0 (Version None)
Quarter: 2004Q3

REPORT INFORMATION
  Report Type: 
  Country: None (occurrence: None)
  Receive Date: 20040901
  Receipt Date: 20040901
  Transmission Date: 20050211
  Serious: Yes (Other)
  Sender: FDA-Public Use
  Company Number: None

PATIENT
  Age: 24 Year
  Sex: Female
  Weight: 66 kg

DRUGS (11)
  1. RAPAMYCIN 1 MG WYETH PHARMACEUTICALS [Suspect]
     Indication: PANCREAS ISLET CELL TRANSPLANT
     Dosage: 9 MG Q DAY PO
     Route: 048
     Dates: start: 20040414
  2. TACROLIMUS [Concomitant]
  3. VALGANCYCLOVIR [Concomitant]
  4. BACTRIM [Concomitant]
  5. ASPIRIN [Concomitant]
  6. COZAAR [Concomitant]
  7. VITAMIN A [Concomitant]
  8. VITAMIN C [Concomitant]
  9. VITAMIN E [Concomitant]
  10. VITAMIN B6 [Concomitant]
  11. HUMALOG [Concomitant]

REACTIONS (1)
  - MOUTH ULCERATION [None]
